FAERS Safety Report 25727735 (Version 2)
Quarter: 2025Q3

REPORT INFORMATION
  Report Type: Report from Study
  Country: US (occurrence: US)
  Receive Date: 20250826
  Receipt Date: 20250915
  Transmission Date: 20251021
  Serious: Yes (Other)
  Sender: ABBVIE
  Company Number: US-ABBVIE-6430328

PATIENT
  Sex: Female

DRUGS (1)
  1. CREON [Suspect]
     Active Substance: PANCRELIPASE AMYLASE\PANCRELIPASE LIPASE\PANCRELIPASE PROTEASE
     Indication: Pancreatic failure
     Route: 048
     Dates: start: 20240222

REACTIONS (8)
  - Neoplasm malignant [Unknown]
  - Craniofacial fracture [Unknown]
  - Fall [Unknown]
  - Insomnia [Unknown]
  - Anxiety [Unknown]
  - Inability to afford medication [Unknown]
  - Product administration error [Unknown]
  - Pain [Unknown]
